FAERS Safety Report 19590195 (Version 7)
Quarter: 2021Q4

REPORT INFORMATION
  Report Type: Report from Study
  Country: DE (occurrence: DE)
  Receive Date: 20210721
  Receipt Date: 20211129
  Transmission Date: 20220303
  Serious: Yes (Hospitalization, Other)
  Sender: FDA-Public Use
  Company Number: DE-002147023-NVSC2021DE004210

PATIENT
  Sex: Female
  Weight: 106.6 kg

DRUGS (11)
  1. LETROZOLE [Suspect]
     Active Substance: LETROZOLE
     Indication: Breast cancer metastatic
     Dosage: 2.5 MILLIGRAM, QD, 2.5 MG QD (DAILY DOSE)
     Route: 048
     Dates: start: 20200626
  2. KISQALI [Suspect]
     Active Substance: RIBOCICLIB
     Indication: Breast cancer metastatic
     Dosage: 600 MILLIGRAM, 600 MG, (DAILY DOSE) (SCHEMA 21 DAYS INTAKE, 7 DAYS PAUSE)
     Route: 048
     Dates: start: 20200713, end: 20201228
  3. KISQALI [Suspect]
     Active Substance: RIBOCICLIB
     Dosage: 600 MILLIGRAM, QD, 600 MG (DAILY DOSE) (SCHEMA 21 DAYS INTAKE, 7 DAYS PAUSE)
     Route: 048
     Dates: start: 20210118, end: 20210528
  4. KISQALI [Suspect]
     Active Substance: RIBOCICLIB
     Dosage: 600 MILLIGRAM, QD, 600 MG (DAILY DOSE) (SCHEMA 21 DAYS INTAKE, 7 DAYS PAUSE)
     Route: 048
     Dates: start: 20210118, end: 20210530
  5. BISOPROLOL [Concomitant]
     Active Substance: BISOPROLOL
     Indication: Hypertension
     Dosage: 5 UNK (AT LEAST SINCE 02 NOV 2020)
     Route: 048
     Dates: start: 2013
  6. AMLODIPINE [Concomitant]
     Active Substance: AMLODIPINE BESYLATE
     Indication: Hypertension
     Dosage: 320 MILLIGRAM, QD, 320 MG (2X 160 MG) (AT LEAST SINCE 02 NOV 2020)
     Route: 048
     Dates: start: 2013
  7. PANTOZOL                           /01263204/ [Concomitant]
     Indication: Product used for unknown indication
     Dosage: 40 MILLIGRAM, 40 MG (AT LEAST SINCE 02 NOV 2020)
     Route: 048
     Dates: start: 2019
  8. VALSARTAN [Concomitant]
     Active Substance: VALSARTAN
     Indication: Hypertension
     Dosage: 10 MILLIGRAM, QD (2X 5 MG) (AT LEAST SINCE 02 NOV 2020)
     Route: 048
     Dates: start: 2013
  9. DECODERM TRI                       /01263901/ [Concomitant]
     Indication: Product used for unknown indication
     Dosage: UNK
     Route: 065
  10. DECODERM TRI                       /01263901/ [Concomitant]
     Dosage: UNK (PEA SIZED AMOUNT, ON THE SKIN)
     Route: 065
     Dates: start: 20201102, end: 202012
  11. BISOPROLOL FUMARATE\HYDROCHLOROTHIAZIDE [Concomitant]
     Active Substance: BISOPROLOL FUMARATE\HYDROCHLOROTHIAZIDE
     Indication: Hypertension
     Dosage: 5 UNK (AT LEAST SINCE 02 NOV 2020)
     Route: 048

REACTIONS (10)
  - Pain [Recovered/Resolved with Sequelae]
  - Lymphoedema [Recovered/Resolved with Sequelae]
  - Movement disorder [Recovered/Resolved with Sequelae]
  - Neoplasm progression [Not Recovered/Not Resolved]
  - Erysipelas [Recovered/Resolved]
  - Hypocalcaemia [Unknown]
  - Iron deficiency anaemia [Recovered/Resolved]
  - Iron deficiency [Not Recovered/Not Resolved]
  - Procedural pain [Not Recovered/Not Resolved]
  - Haemoglobin abnormal [Recovered/Resolved]

NARRATIVE: CASE EVENT DATE: 20200706
